FAERS Safety Report 7207005-6 (Version None)
Quarter: 2011Q1

REPORT INFORMATION
  Report Type: 
  Country: None (occurrence: None)
  Receive Date: 20110103
  Receipt Date: 20101221
  Transmission Date: 20110831
  Serious: Yes (Other)
  Sender: FDA-Public Use
  Company Number: B0359635A

PATIENT
  Age: 27 Year
  Sex: Male

DRUGS (9)
  1. CODEINE [Suspect]
     Dates: start: 20020820
  2. ASPIRIN [Suspect]
     Route: 065
  3. FLUOXETINE [Concomitant]
  4. LOFEPRAMINE [Suspect]
  5. IBUPROFEN [Suspect]
     Dates: start: 20020820
  6. IBUPROFEN [Suspect]
     Indication: PRODUCT USED FOR UNKNOWN INDICATION
     Dates: start: 20020820, end: 20020820
  7. IBUPROFEN [Suspect]
     Dates: start: 20020820
  8. LITHIUM [Concomitant]
  9. SEROXAT [Suspect]
     Indication: PHOBIA
     Dosage: 20MG PER DAY
     Dates: start: 19990901, end: 20021201

REACTIONS (6)
  - DRUG WITHDRAWAL SYNDROME [None]
  - CONSTIPATION [None]
  - OVERDOSE [None]
  - SUICIDE ATTEMPT [None]
  - VISION BLURRED [None]
  - DRY MOUTH [None]
